FAERS Safety Report 23537063 (Version 1)
Quarter: 2024Q1

REPORT INFORMATION
  Report Type: Report from Study
  Country: US (occurrence: US)
  Receive Date: 20240219
  Receipt Date: 20240219
  Transmission Date: 20240410
  Serious: No
  Sender: FDA-Public Use
  Company Number: US-AURINIA PHARMACEUTICALS INC.-AUR-004112

PATIENT
  Sex: Male

DRUGS (2)
  1. LUPKYNIS [Suspect]
     Active Substance: VOCLOSPORIN
     Indication: Lupus nephritis
     Dosage: 23.7 MILLIGRAM, BID
     Route: 048
     Dates: start: 20220503
  2. LUPKYNIS [Suspect]
     Active Substance: VOCLOSPORIN
     Dosage: UNK UNK, PRN
     Route: 048

REACTIONS (2)
  - Intentional dose omission [Unknown]
  - Treatment noncompliance [Unknown]
